FAERS Safety Report 19175030 (Version 1)
Quarter: 2021Q2

REPORT INFORMATION
  Report Type: Report from Study
  Country: None (occurrence: US)
  Receive Date: 20210424
  Receipt Date: 20210424
  Transmission Date: 20210717
  Serious: Yes (Other)
  Sender: FDA-Public Use
  Company Number: US-ABBVIE-21K-163-3870430-00

PATIENT
  Sex: Female

DRUGS (1)
  1. SKYRIZI [Suspect]
     Active Substance: RISANKIZUMAB-RZAA
     Indication: HIDRADENITIS
     Dosage: SKYRIZI 75MG/0.83ML SYRINGE
     Route: 058

REACTIONS (3)
  - Post procedural complication [Unknown]
  - Surgery [Unknown]
  - Gait disturbance [Unknown]
